FAERS Safety Report 7609433-3 (Version None)
Quarter: 2011Q3

REPORT INFORMATION
  Report Type: 
  Country: None (occurrence: None)
  Receive Date: 20110713
  Receipt Date: 20110713
  Transmission Date: 20111222
  Serious: No
  Sender: FDA-Public Use
  Company Number: None

PATIENT
  Sex: Female
  Weight: 93.441 kg

DRUGS (2)
  1. SANCTURA XR [Suspect]
     Indication: URGE INCONTINENCE
     Dosage: 60MG QHS PO
     Route: 048
     Dates: start: 20110602, end: 20110702
  2. SANCTURA XR [Suspect]
     Indication: HYPERTONIC BLADDER
     Dosage: 60MG QHS PO
     Route: 048
     Dates: start: 20110602, end: 20110702

REACTIONS (1)
  - MUSCLE SPASMS [None]
